FAERS Safety Report 10676863 (Version 4)
Quarter: 2015Q3

REPORT INFORMATION
  Report Type: Spontaneous
  Country: US (occurrence: US)
  Receive Date: 20141226
  Receipt Date: 20150728
  Transmission Date: 20151125
  Serious: Yes (Hospitalization, Other)
  Sender: FDA-Public Use
  Company Number: US-SA-2014SA176253

PATIENT
  Age: 7 Year
  Sex: Female
  Weight: 17.5 kg

DRUGS (1)
  1. LUMIZYME [Suspect]
     Active Substance: ALGLUCOSIDASE ALFA
     Indication: GLYCOGEN STORAGE DISEASE TYPE II
     Route: 041
     Dates: start: 20141205, end: 20150702

REACTIONS (11)
  - Bronchiectasis [Recovered/Resolved]
  - Pyrexia [Unknown]
  - Neutrophilia [Recovered/Resolved]
  - Product contamination physical [Unknown]
  - Bronchitis [Recovered/Resolved]
  - Bronchial secretion retention [Recovered/Resolved]
  - Device occlusion [Unknown]
  - Respiratory tract infection [Unknown]
  - Candida infection [Recovered/Resolved]
  - White blood cell count increased [Recovered/Resolved]
  - Haemophilus infection [Recovered/Resolved]

NARRATIVE: CASE EVENT DATE: 20141216
